FAERS Safety Report 5701423-0 (Version None)
Quarter: 2008Q2

REPORT INFORMATION
  Report Type: 
  Country: None (occurrence: None)
  Receive Date: 20080410
  Receipt Date: 20080331
  Transmission Date: 20081010
  Serious: Yes (Life-Threatening, Hospitalization)
  Sender: FDA-Public Use
  Company Number: CO-MERCK-0803COL00012

PATIENT
  Age: 4 Year
  Sex: Male

DRUGS (2)
  1. SINGULAIR [Suspect]
     Indication: ASTHMA
     Route: 048
     Dates: start: 20061201, end: 20080301
  2. AMPICILLIN SODIUM AND SULBACTAM SODIUM [Concomitant]
     Route: 065

REACTIONS (1)
  - KAWASAKI'S DISEASE [None]
